FAERS Safety Report 8534948 (Version 3)
Quarter: 2012Q4

REPORT INFORMATION
  Report Type: 
  Country: US (occurrence: US)
  Receive Date: 20120427
  Receipt Date: 20121102
  Transmission Date: 20130627
  Serious: Yes (Disabling, Other)
  Sender: FDA-Public Use
  Company Number: US-ASTRAZENECA-2012SE25616

PATIENT
  Age: 80 Year
  Sex: Female

DRUGS (2)
  1. CRESTOR [Suspect]
     Route: 048
  2. NEXIUM [Concomitant]

REACTIONS (2)
  - Age-related macular degeneration [Not Recovered/Not Resolved]
  - Blindness [Unknown]
